FAERS Safety Report 7734377-6 (Version None)
Quarter: 2011Q3

REPORT INFORMATION
  Report Type: 
  Country: None (occurrence: None)
  Receive Date: 20110907
  Receipt Date: 20110901
  Transmission Date: 20111222
  Serious: Yes (Hospitalization, Other)
  Sender: FDA-Public Use
  Company Number: US-AMGEN-USASP2011041806

PATIENT
  Age: 60 Year
  Sex: Male
  Weight: 129.25 kg

DRUGS (19)
  1. NPLATE [Suspect]
  2. CORTICOSTEROIDS [Concomitant]
     Indication: IDIOPATHIC THROMBOCYTOPENIC PURPURA
  3. JANUVIA [Concomitant]
  4. DICYCLOMINE [Concomitant]
  5. FUROSEMIDE [Concomitant]
  6. FOLIC ACID [Concomitant]
  7. NORCO [Concomitant]
  8. LANTUS [Concomitant]
  9. KLOR-CON [Concomitant]
  10. RITUXIMAB [Concomitant]
     Indication: IDIOPATHIC THROMBOCYTOPENIC PURPURA
  11. PREDNISONE [Concomitant]
  12. NPLATE [Suspect]
     Indication: IDIOPATHIC THROMBOCYTOPENIC PURPURA
     Route: 058
     Dates: start: 20081030
  13. OMEPRAZOLE [Concomitant]
  14. HUMULIN                            /00646001/ [Concomitant]
  15. BENADRYL [Concomitant]
  16. IVIGLOB-EX [Concomitant]
     Indication: IDIOPATHIC THROMBOCYTOPENIC PURPURA
  17. DECADRON [Concomitant]
  18. LEVAQUIN [Concomitant]
  19. TYLENOL (CAPLET) [Concomitant]

REACTIONS (5)
  - LEUKOCYTOSIS [None]
  - FOOT AMPUTATION [None]
  - PLATELET COUNT ABNORMAL [None]
  - TYPE 2 DIABETES MELLITUS [None]
  - ANAEMIA [None]
